FAERS Safety Report 8372449-6 (Version None)
Quarter: 2012Q2

REPORT INFORMATION
  Report Type: 
  Country: None (occurrence: None)
  Receive Date: 20120521
  Receipt Date: 20120510
  Transmission Date: 20120825
  Serious: Yes (Other)
  Sender: FDA-Public Use
  Company Number: US-US-EMD SERONO, INC.-7131509

PATIENT
  Age: 41 Year
  Sex: Female

DRUGS (4)
  1. CHORIOGONADOTROPIN ALFA [Suspect]
     Indication: IN VITRO FERTILISATION
  2. FOLLITROPIN BETA [Suspect]
     Indication: IN VITRO FERTILISATION
  3. GANIRELIX ACETATE INJECTION [Suspect]
     Indication: IN VITRO FERTILISATION
  4. MENOTROPINS [Suspect]
     Indication: IN VITRO FERTILISATION

REACTIONS (1)
  - ABORTION INDUCED [None]
